FAERS Safety Report 8358361 (Version 3)
Quarter: 2013Q1

REPORT INFORMATION
  Report Type: Spontaneous
  Country: DE (occurrence: DE)
  Receive Date: 20120127
  Receipt Date: 20130326
  Transmission Date: 20140127
  Serious: Yes (Other)
  Sender: FDA-Public Use
  Company Number: DE-AMGEN-DEUSP2012004203

PATIENT
  Age: 52 Year
  Sex: Female

DRUGS (4)
  1. ENBREL [Suspect]
     Indication: PSORIATIC ARTHROPATHY
     Dosage: 50 MG, WEEKLY
     Route: 058
     Dates: start: 20110703, end: 20120814
  2. CORTISONE [Concomitant]
     Dosage: UNK, AS NEEDED
  3. METHOTREXATE [Concomitant]
     Dosage: UNK
  4. OESTROGEN [Concomitant]
     Indication: HYSTERECTOMY
     Dosage: UNK

REACTIONS (6)
  - Drug effect decreased [Unknown]
  - Fatigue [Unknown]
  - Chills [Unknown]
  - Pain [Unknown]
  - Lung infection [Recovered/Resolved]
  - Bronchitis [Recovered/Resolved]
